FAERS Safety Report 15579383 (Version 8)
Quarter: 2019Q2

REPORT INFORMATION
  Report Type: Report from Study
  Country: CA (occurrence: CA)
  Receive Date: 20181102
  Receipt Date: 20190618
  Transmission Date: 20190711
  Serious: Yes (Hospitalization, Other)
  Sender: FDA-Public Use
  Company Number: CA-PFIZER INC-2018447943

PATIENT
  Age: 51 Year
  Sex: Female

DRUGS (34)
  1. CERTOLIZUMAB PEGOL [Suspect]
     Active Substance: CERTOLIZUMAB PEGOL
     Dosage: 400 MILLIGRAM, Q2WK
     Route: 058
  2. HUMIRA [Suspect]
     Active Substance: ADALIMUMAB
     Dosage: UNK
     Route: 058
  3. AMLODIPINE [Concomitant]
     Active Substance: AMLODIPINE BESYLATE
     Dosage: UNK
  4. CIMZIA [Suspect]
     Active Substance: CERTOLIZUMAB PEGOL
     Dosage: UNK
     Route: 058
  5. PREDNISONE. [Concomitant]
     Active Substance: PREDNISONE
     Indication: URTICARIA
     Dosage: UNK
     Route: 065
  6. CEFAZOLIN [Suspect]
     Active Substance: CEFAZOLIN
     Dosage: UNK
     Route: 065
  7. CERTOLIZUMAB PEGOL [Suspect]
     Active Substance: CERTOLIZUMAB PEGOL
     Dosage: 400 MILLIGRAM, Q2WK
     Route: 058
  8. ORENCIA [Suspect]
     Active Substance: ABATACEPT
     Dosage: UNK
     Route: 065
  9. AMLODIPINE [Concomitant]
     Active Substance: AMLODIPINE BESYLATE
     Indication: HYPERTENSION
     Dosage: UNK
     Route: 065
  10. BENADRYL [Concomitant]
     Active Substance: DIPHENHYDRAMINE HYDROCHLORIDE
     Indication: URTICARIA
     Dosage: UNK
     Route: 065
  11. VIREAD [Concomitant]
     Active Substance: TENOFOVIR DISOPROXIL FUMARATE
     Dosage: UNK
  12. METHOTREXATE SODIUM. [Suspect]
     Active Substance: METHOTREXATE SODIUM
     Dosage: 25 MILLIGRAM, QWK
     Route: 058
  13. PLAQUENIL [Suspect]
     Active Substance: HYDROXYCHLOROQUINE SULFATE
     Dosage: 200 MG, BID
     Route: 065
  14. METHOTREXATE. [Concomitant]
     Active Substance: METHOTREXATE
     Indication: RHEUMATOID ARTHRITIS
     Dosage: UNK
     Route: 065
  15. NAPROXEN. [Concomitant]
     Active Substance: NAPROXEN
     Indication: ARTHRALGIA
     Dosage: 50 UNK
     Route: 065
  16. NAPROXEN. [Concomitant]
     Active Substance: NAPROXEN
     Dosage: 500 MG, UNK
  17. TOFACITINIB CITRATE [Concomitant]
     Active Substance: TOFACITINIB CITRATE
     Dosage: UNK
  18. METHOTREXATE SODIUM. [Suspect]
     Active Substance: METHOTREXATE SODIUM
     Indication: RHEUMATOID ARTHRITIS
     Dosage: 25 MILLIGRAM, QWK
     Route: 058
  19. METHOTREXATE SODIUM. [Suspect]
     Active Substance: METHOTREXATE SODIUM
     Dosage: UNK
     Route: 065
  20. APO-LEFLUNOMIDE [Suspect]
     Active Substance: LEFLUNOMIDE
     Indication: RHEUMATOID ARTHRITIS
     Dosage: 10 MG, UNK
     Route: 048
  21. VIREAD [Concomitant]
     Active Substance: TENOFOVIR DISOPROXIL FUMARATE
     Dosage: UNK
     Route: 065
  22. ENBREL [Suspect]
     Active Substance: ETANERCEPT
     Indication: RHEUMATOID ARTHRITIS
     Dosage: UNK
     Route: 065
  23. METHOTREXATE SODIUM. [Suspect]
     Active Substance: METHOTREXATE SODIUM
     Dosage: 25 MILLIGRAM, QWK
     Route: 058
  24. CERTOLIZUMAB PEGOL [Suspect]
     Active Substance: CERTOLIZUMAB PEGOL
     Indication: RHEUMATOID ARTHRITIS
     Dosage: 200 MILLIGRAM, Q2WK
     Route: 058
  25. PLAQUENIL [Suspect]
     Active Substance: HYDROXYCHLOROQUINE SULFATE
     Dosage: 200 MILLIGRAM, Q2WK
     Route: 065
  26. HYDROXYCHLOROQUINE SULFATE. [Suspect]
     Active Substance: HYDROXYCHLOROQUINE SULFATE
     Dosage: 200 MILLIGRAM, BID
     Route: 065
  27. ARAVA [Concomitant]
     Active Substance: LEFLUNOMIDE
     Dosage: UNK
  28. LEFLUNOMIDE. [Suspect]
     Active Substance: LEFLUNOMIDE
     Dosage: 10 MILLIGRAM, UNK
     Route: 048
  29. PREDNISONE. [Concomitant]
     Active Substance: PREDNISONE
     Dosage: UNK
  30. REMICADE [Suspect]
     Active Substance: INFLIXIMAB
     Dosage: UNK
     Route: 042
  31. RITUXAN [Suspect]
     Active Substance: RITUXIMAB
     Dosage: UNK
     Route: 042
  32. ARAVA [Concomitant]
     Active Substance: LEFLUNOMIDE
     Dosage: UNK
     Route: 065
  33. TOFACITINIB CITRATE [Concomitant]
     Active Substance: TOFACITINIB CITRATE
     Dosage: UNK
     Route: 065
  34. XELJANZ [Concomitant]
     Active Substance: TOFACITINIB CITRATE
     Dosage: 5 MG, UNK
     Route: 048

REACTIONS (10)
  - Abdominal discomfort [Recovered/Resolved]
  - Urticaria [Recovered/Resolved]
  - Drug ineffective [Recovered/Resolved]
  - Arthrodesis [Recovered/Resolved]
  - Contraindicated product administered [Unknown]
  - Rheumatoid arthritis [Recovered/Resolved]
  - Hand deformity [Recovered/Resolved]
  - Drug hypersensitivity [Recovered/Resolved]
  - Infection [Recovered/Resolved]
  - Rash [Recovered/Resolved]
